FAERS Safety Report 8380026-6 (Version None)
Quarter: 2012Q2

REPORT INFORMATION
  Report Type: 
  Country: None (occurrence: None)
  Receive Date: 20120523
  Receipt Date: 20120521
  Transmission Date: 20120825
  Serious: Yes (Hospitalization)
  Sender: FDA-Public Use
  Company Number: US-PFIZER INC-2012123819

PATIENT
  Sex: Male

DRUGS (2)
  1. CHANTIX [Suspect]
     Dosage: UNK
     Dates: start: 20090501
  2. CHANTIX [Suspect]
     Dosage: UNK
     Dates: start: 20100501

REACTIONS (2)
  - PARANOIA [None]
  - DELUSION [None]
